FAERS Safety Report 8621442-4 (Version None)
Quarter: 2012Q3

REPORT INFORMATION
  Report Type: 
  Country: None (occurrence: None)
  Receive Date: 20120824
  Receipt Date: 20120815
  Transmission Date: 20120928
  Serious: Yes (Other)
  Sender: FDA-Public Use
  Company Number: US-ASTRAZENECA-2012SE57636

PATIENT
  Age: 45 Year
  Sex: Female
  Weight: 75.8 kg

DRUGS (5)
  1. SEROQUEL XR [Suspect]
     Indication: BIPOLAR DISORDER
     Route: 048
  2. IBUPROFEN [Concomitant]
     Indication: JOINT SWELLING
  3. SEROQUEL XR [Suspect]
     Indication: ANXIETY DISORDER
     Route: 048
  4. REGULAR VITAMINS [Concomitant]
  5. SEROQUEL XR [Suspect]
     Indication: SLEEP DISORDER
     Route: 048

REACTIONS (2)
  - FALL [None]
  - WRIST FRACTURE [None]
